FAERS Safety Report 9751928 (Version 1)
Quarter: 2013Q4

REPORT INFORMATION
  Report Type: Spontaneous
  Country: US (occurrence: US)
  Receive Date: 20131213
  Receipt Date: 20131213
  Transmission Date: 20140711
  Serious: Yes (Other)
  Sender: FDA-Public Use
  Company Number: US-JNJFOC-20131202640

PATIENT
  Sex: Male
  Weight: 86.18 kg

DRUGS (5)
  1. XARELTO [Suspect]
     Indication: THROMBOSIS
     Route: 048
     Dates: start: 2013
  2. EXFORGE [Concomitant]
     Indication: BLOOD PRESSURE
     Dosage: DOSE: 5-160
     Route: 048
  3. ULORIC [Concomitant]
     Indication: BLOOD URIC ACID
     Route: 048
     Dates: start: 2011
  4. FISH OIL [Concomitant]
     Indication: BLOOD TRIGLYCERIDES
     Route: 048
  5. VITAMIN D [Concomitant]
     Indication: VITAMIN D
     Dosage: 2000 UNITS
     Route: 048

REACTIONS (3)
  - Arthropathy [Not Recovered/Not Resolved]
  - Aortic valve calcification [Not Recovered/Not Resolved]
  - Cardiac valve disease [Not Recovered/Not Resolved]
